FAERS Safety Report 14898042 (Version 2)
Quarter: 2018Q2

REPORT INFORMATION
  Report Type: Spontaneous
  Country: US (occurrence: US)
  Receive Date: 20180515
  Receipt Date: 20180517
  Transmission Date: 20180711
  Serious: No
  Sender: FDA-Public Use
  Company Number: US-SA-2017SA261820

PATIENT
  Age: 73 Year
  Sex: Female
  Weight: 68.95 kg

DRUGS (4)
  1. TOUJEO [Suspect]
     Active Substance: INSULIN GLARGINE
     Indication: TYPE 2 DIABETES MELLITUS
     Dosage: DOSE:14 UNIT(S)
     Route: 051
     Dates: start: 20171212
  2. GLIMEPIRIDE. [Suspect]
     Active Substance: GLIMEPIRIDE
     Route: 048
  3. GLIMEPIRIDE. [Suspect]
     Active Substance: GLIMEPIRIDE
     Route: 048
  4. SOLOSTAR [Suspect]
     Active Substance: DEVICE
     Dates: start: 20171212

REACTIONS (6)
  - Dizziness [Unknown]
  - Sleep disorder [Unknown]
  - Blood glucose increased [Not Recovered/Not Resolved]
  - Malaise [Unknown]
  - Flatulence [Unknown]
  - Constipation [Unknown]

NARRATIVE: CASE EVENT DATE: 2017
